FAERS Safety Report 7268420-8 (Version None)
Quarter: 2011Q1

REPORT INFORMATION
  Report Type: 
  Country: None (occurrence: None)
  Receive Date: 20110201
  Receipt Date: 20110125
  Transmission Date: 20110831
  Serious: Yes (Disabling, Other)
  Sender: FDA-Public Use
  Company Number: CA-PFIZER INC-2011018460

PATIENT
  Age: 64 Year
  Sex: Male
  Weight: 90.703 kg

DRUGS (9)
  1. FENOFIBRATE [Concomitant]
     Indication: CARDIAC FIBRILLATION
     Dosage: 30 MG, 2X/DAY
     Route: 048
  2. PHENOBARBITONE [Concomitant]
     Indication: TEMPORAL LOBE EPILEPSY
     Dosage: 30 MG, 2X/DAY
  3. LIPITOR [Suspect]
     Indication: BLOOD CHOLESTEROL INCREASED
     Dosage: 40 MG, 1X/DAY
     Route: 048
     Dates: start: 20101110, end: 20110120
  4. LIPITOR [Suspect]
     Indication: CORONARY ARTERY DISEASE
  5. RAMIPRIL [Concomitant]
     Indication: CARDIAC FIBRILLATION
  6. HYDROCHLOROTHIAZIDE [Concomitant]
     Indication: CARDIAC FIBRILLATION
  7. RAMIPRIL [Concomitant]
     Indication: ATRIAL TACHYCARDIA
     Dosage: 5 MG, 2X/DAY
     Route: 048
  8. ASPIRIN [Concomitant]
     Indication: CARDIAC FIBRILLATION
     Dosage: 325 MG, 1X/DAY
     Route: 048
  9. HYDROCHLOROTHIAZIDE [Concomitant]
     Indication: ATRIAL TACHYCARDIA
     Dosage: 12.5 MG, 1X/DAY
     Route: 048

REACTIONS (5)
  - CARDIAC DISORDER [None]
  - ASTHENIA [None]
  - PAIN IN EXTREMITY [None]
  - MUSCULAR WEAKNESS [None]
  - FALL [None]
